FAERS Safety Report 9777537 (Version 2)
Quarter: 2014Q1

REPORT INFORMATION
  Report Type: Spontaneous
  Country: US (occurrence: US)
  Receive Date: 20131222
  Receipt Date: 20140212
  Transmission Date: 20141002
  Serious: No
  Sender: FDA-Public Use
  Company Number: US-009507513-1312USA009145

PATIENT
  Age: 44 Year
  Sex: Female
  Weight: 102.4 kg

DRUGS (2)
  1. EMEND FOR INJECTION [Suspect]
     Indication: PROPHYLAXIS OF NAUSEA AND VOMITING
     Dosage: TOTAL DAILY DOSEL:150MG
     Route: 042
     Dates: start: 20130822, end: 20130822
  2. EMEND FOR INJECTION [Suspect]
     Indication: PREMEDICATION

REACTIONS (3)
  - Dyspnoea [Recovered/Resolved]
  - Flushing [Recovered/Resolved]
  - Blood pressure increased [Recovered/Resolved]
